FAERS Safety Report 9644395 (Version 1)
Quarter: 2013Q4

REPORT INFORMATION
  Report Type: Spontaneous
  Country: US (occurrence: US)
  Receive Date: 20131025
  Receipt Date: 20131025
  Transmission Date: 20140711
  Serious: No
  Sender: FDA-Public Use
  Company Number: US-BIOGENIDEC-2009BI008235

PATIENT
  Age: 72 Year
  Sex: Female

DRUGS (3)
  1. AVONEX [Suspect]
     Indication: MULTIPLE SCLEROSIS
     Route: 030
  2. AVONEX [Suspect]
     Indication: MULTIPLE SCLEROSIS
     Route: 030
     Dates: start: 20001031, end: 2003
  3. AVONEX [Suspect]
     Indication: MULTIPLE SCLEROSIS
     Route: 030
     Dates: start: 2003

REACTIONS (18)
  - Fall [Recovered/Resolved]
  - Bladder disorder [Recovered/Resolved]
  - Cystitis [Unknown]
  - Intervertebral disc protrusion [Not Recovered/Not Resolved]
  - Abasia [Not Recovered/Not Resolved]
  - Cataract [Recovered/Resolved]
  - Blindness [Recovered/Resolved]
  - Carpal tunnel syndrome [Not Recovered/Not Resolved]
  - Scoliosis [Not Recovered/Not Resolved]
  - Gastrointestinal malformation [Not Recovered/Not Resolved]
  - Herpes zoster [Recovered/Resolved]
  - Diverticulitis [Recovered/Resolved]
  - Glaucoma [Not Recovered/Not Resolved]
  - Gait disturbance [Not Recovered/Not Resolved]
  - Urinary incontinence [Not Recovered/Not Resolved]
  - Breath odour [Not Recovered/Not Resolved]
  - Influenza like illness [Recovered/Resolved]
  - Malaise [Unknown]
